FAERS Safety Report 7803193-9 (Version None)
Quarter: 2011Q4

REPORT INFORMATION
  Report Type: 
  Country: None (occurrence: None)
  Receive Date: 20111007
  Receipt Date: 20110928
  Transmission Date: 20120403
  Serious: Yes (Hospitalization)
  Sender: FDA-Public Use
  Company Number: US-ASTRAZENECA-2009SE29672

PATIENT
  Age: 56 Year
  Sex: Male
  Weight: 80.7 kg

DRUGS (4)
  1. ASPIRIN [Concomitant]
  2. CHOLESTEROL MEDICATION [Concomitant]
  3. SEROQUEL [Suspect]
     Indication: SCHIZOPHRENIA
     Route: 048
  4. PLAVIX [Concomitant]

REACTIONS (3)
  - MYOCARDIAL INFARCTION [None]
  - SCHIZOPHRENIA [None]
  - WEIGHT INCREASED [None]
